FAERS Safety Report 8078686-2 (Version None)
Quarter: 2012Q1

REPORT INFORMATION
  Report Type: 
  Country: None (occurrence: None)
  Receive Date: 20120124
  Receipt Date: 20120103
  Transmission Date: 20120608
  Serious: Yes (Hospitalization)
  Sender: FDA-Public Use
  Company Number: FI-024955

PATIENT
  Age: 84 Year
  Sex: Female

DRUGS (2)
  1. (RITUXIMAB) [Suspect]
     Indication: CHRONIC LYMPHOCYTIC LEUKAEMIA
     Dosage: 650 MG  INTRAVENOUS (NOT OTHERWISE SPECIFIED)
     Route: 042
  2. (CHLORAMBUCIL) [Suspect]
     Indication: CHRONIC LYMPHOCYTIC LEUKAEMIA
     Dosage: TABLET 112 MG 1X/4 WEEKS, 1X/WEEK, ORAL
     Route: 048
     Dates: start: 20110131

REACTIONS (2)
  - SINUSITIS [None]
  - PYREXIA [None]
